FAERS Safety Report 5005658-4 (Version None)
Quarter: 2006Q2

REPORT INFORMATION
  Report Type: 
  Country: None (occurrence: None)
  Receive Date: 20060515
  Receipt Date: 20060329
  Transmission Date: 20061013
  Serious: Yes (Other)
  Sender: FDA-Public Use
  Company Number: 06C087

PATIENT
  Age: 41 Year
  Sex: Female
  Weight: 68.0396 kg

DRUGS (1)
  1. HYDROCORTISONE CREAM 0.5% [Suspect]
     Indication: TONGUE BLISTERING
     Dosage: ORAL APPLICATION - 3X
     Dates: start: 20060317

REACTIONS (3)
  - EPISTAXIS [None]
  - HAEMATEMESIS [None]
  - VOMITING [None]
